FAERS Safety Report 12094241 (Version 2)
Quarter: 2016Q2

REPORT INFORMATION
  Report Type: Report from Study
  Country: DE (occurrence: DE)
  Receive Date: 20160219
  Receipt Date: 20160519
  Transmission Date: 20160815
  Serious: Yes (Other)
  Sender: FDA-Public Use
  Company Number: DE-BRISTOL-MYERS SQUIBB COMPANY-BMS-2016-011674

PATIENT
  Age: 73 Year
  Sex: Male
  Weight: 98 kg

DRUGS (1)
  1. APIXABAN [Suspect]
     Active Substance: APIXABAN
     Indication: CEREBROVASCULAR ACCIDENT PROPHYLAXIS
     Dosage: 5 MG, BID
     Route: 048
     Dates: start: 20140205

REACTIONS (2)
  - Deep vein thrombosis [Unknown]
  - Peripheral embolism [Unknown]

NARRATIVE: CASE EVENT DATE: 20151105
